FAERS Safety Report 4364607-2 (Version None)
Quarter: 2004Q2

REPORT INFORMATION
  Report Type: 
  Country: None (occurrence: None)
  Receive Date: 20040521
  Receipt Date: 20040510
  Transmission Date: 20050107
  Serious: Yes (Hospitalization)
  Sender: FDA-Public Use
  Company Number: 04P-163-0260199-00

PATIENT
  Age: 20 Year
  Sex: Male

DRUGS (15)
  1. DEPACON [Suspect]
     Indication: CONVULSION
     Dosage: 750 MG, 4 IN 1 D, PER ORAL
     Route: 048
  2. HEPARIN-FRACTION, SODIUM SALT [Concomitant]
  3. DOCUSATE SODIUM [Concomitant]
  4. MERAM [Concomitant]
  5. BACTRIM [Concomitant]
  6. PROPRANOLOL [Concomitant]
  7. LIORESAL [Concomitant]
  8. POTASSIUM CHLORIDE [Concomitant]
  9. BACITRACIN [Concomitant]
  10. CELECOXIB [Concomitant]
  11. ACCUZYME [Concomitant]
  12. LORAZEPAM [Concomitant]
  13. MORPHINE [Concomitant]
  14. METOCLOPRAMIDE [Concomitant]
  15. CHLOREXIDINE GLUCONATE [Concomitant]

REACTIONS (3)
  - COMA [None]
  - HEAD INJURY [None]
  - PYREXIA [None]
